FAERS Safety Report 19404235 (Version 1)
Quarter: 2021Q2

REPORT INFORMATION
  Report Type: Spontaneous
  Country: US (occurrence: US)
  Receive Date: 20210611
  Receipt Date: 20210611
  Transmission Date: 20210717
  Serious: No
  Sender: FDA-Public Use
  Company Number: None

PATIENT
  Age: 41 Year
  Sex: Male
  Weight: 90 kg

DRUGS (2)
  1. TESTOSTERONE CYPIONATE. [Suspect]
     Active Substance: TESTOSTERONE CYPIONATE
     Indication: PRIMARY HYPOGONADISM
     Dosage: ?          OTHER FREQUENCY:Q.WK.;?
     Route: 030
  2. TESTOSTERONE CYPIONATE. [Suspect]
     Active Substance: TESTOSTERONE CYPIONATE
     Indication: PRIMARY HYPOGONADISM
     Dosage: ?          OTHER FREQUENCY:Q.WK.;?
     Route: 030

REACTIONS (2)
  - Product prescribing issue [None]
  - Product label confusion [None]

NARRATIVE: CASE EVENT DATE: 20210527
